FAERS Safety Report 24431479 (Version 2)
Quarter: 2025Q1

REPORT INFORMATION
  Report Type: Spontaneous
  Country: MX (occurrence: MX)
  Receive Date: 20241014
  Receipt Date: 20250107
  Transmission Date: 20250409
  Serious: Yes (Other)
  Sender: ROCHE
  Company Number: MX-ROCHE-10000100504

PATIENT
  Age: 39 Year
  Sex: Female
  Weight: 95 kg

DRUGS (2)
  1. PERTUZUMAB [Suspect]
     Active Substance: PERTUZUMAB
     Indication: Breast cancer
     Dosage: DOSE WAS NOT REPORTED
     Route: 042
     Dates: start: 202309
  2. HERCEPTIN [Suspect]
     Active Substance: TRASTUZUMAB
     Indication: Breast cancer
     Dosage: DOSE WAS NOT REPORTED?TRASTUZUMAB
     Route: 042
     Dates: start: 202309

REACTIONS (4)
  - Metastases to central nervous system [Recovering/Resolving]
  - Vomiting [Not Recovered/Not Resolved]
  - Weight decreased [Not Recovered/Not Resolved]
  - Tumour inflammation [Recovering/Resolving]

NARRATIVE: CASE EVENT DATE: 20240927
